FAERS Safety Report 18787514 (Version 7)
Quarter: 2024Q4

REPORT INFORMATION
  Report Type: Spontaneous
  Country: CA (occurrence: CA)
  Receive Date: 20210126
  Receipt Date: 20241018
  Transmission Date: 20250114
  Serious: Yes (Other)
  Sender: PFIZER
  Company Number: CA-PFIZER INC-2021051075

PATIENT
  Age: 49 Year
  Sex: Female

DRUGS (9)
  1. XELJANZ [Suspect]
     Active Substance: TOFACITINIB CITRATE
     Indication: Colitis ulcerative
     Dosage: 5 MG, 2X/DAY
     Route: 048
     Dates: start: 20201121, end: 2020
  2. XELJANZ [Suspect]
     Active Substance: TOFACITINIB CITRATE
     Dosage: 5 MG, 2X/DAY
     Route: 048
     Dates: start: 2020, end: 2022
  3. XELJANZ [Suspect]
     Active Substance: TOFACITINIB CITRATE
     Dosage: 10 MG, 2X/DAY
     Route: 048
     Dates: start: 2022, end: 2022
  4. XELJANZ [Suspect]
     Active Substance: TOFACITINIB CITRATE
     Dosage: 5 MG, 2X/DAY (SELF REDUCED DOSE)
     Route: 048
     Dates: start: 2022, end: 2022
  5. XELJANZ [Suspect]
     Active Substance: TOFACITINIB CITRATE
     Dosage: 10 MG, 2X/DAY
     Route: 048
     Dates: start: 2022
  6. ESTROGEL [Concomitant]
     Active Substance: ESTRADIOL
     Indication: Menstrual disorder
     Dosage: 1.25 G, CYCLIC (DAILY IN THE EVENINGS FOR 3 WEEKS, THEN STOPPED FOR ONE WEEK)
     Route: 061
  7. MESALAMINE [Concomitant]
     Active Substance: MESALAMINE
     Dosage: 4 DF, 1X/DAY (4 TABS OD)
     Route: 065
  8. MESALAMINE [Concomitant]
     Active Substance: MESALAMINE
     Dosage: 1 DF, 1X/DAY (4 TABS OD)
     Route: 065
  9. PREDNISONE [Concomitant]
     Active Substance: PREDNISONE
     Dosage: 1 DF, TAPERING - DOWN TO 5 MG
     Route: 065

REACTIONS (5)
  - Colitis ulcerative [Not Recovered/Not Resolved]
  - Rectal haemorrhage [Recovered/Resolved]
  - Condition aggravated [Recovered/Resolved]
  - Stress [Unknown]
  - Intentional product use issue [Unknown]

NARRATIVE: CASE EVENT DATE: 20210118
